FAERS Safety Report 6290754-4 (Version None)
Quarter: 2009Q3

REPORT INFORMATION
  Report Type: 
  Country: None (occurrence: None)
  Receive Date: 20090729
  Receipt Date: 20090729
  Transmission Date: 20100115
  Serious: Yes (Other)
  Sender: FDA-Public Use
  Company Number: None

PATIENT
  Age: 62 Year
  Sex: Female
  Weight: 58.9676 kg

DRUGS (1)
  1. RECLAST [Suspect]
     Dates: start: 20080508, end: 20090510

REACTIONS (4)
  - HYPOAESTHESIA [None]
  - IMPAIRED HEALING [None]
  - OSTEOPENIA [None]
  - UPPER LIMB FRACTURE [None]
